FAERS Safety Report 8911796 (Version 1)
Quarter: 2012Q4

REPORT INFORMATION
  Report Type: 
  Country: US (occurrence: US)
  Receive Date: 20121115
  Receipt Date: 20121115
  Transmission Date: 20130627
  Serious: Yes (Hospitalization, Other)
  Sender: FDA-Public Use
  Company Number: US-GLAXOSMITHKLINE-A0988095A

PATIENT
  Age: 65 Year
  Sex: Male
  Weight: 66.4 kg

DRUGS (6)
  1. ARIXTRA [Suspect]
     Indication: COAGULOPATHY
     Dosage: 7.5MG Unknown
     Route: 058
     Dates: start: 2011, end: 2011
  2. COUMADIN [Suspect]
  3. TYLENOL [Concomitant]
  4. OMEPRAZOLE [Concomitant]
  5. VITAMIN D [Concomitant]
  6. ASPIRIN [Concomitant]

REACTIONS (11)
  - Haemorrhage [Recovered/Resolved]
  - Drug dispensing error [Recovered/Resolved]
  - Coagulopathy [Unknown]
  - Embolism venous [Unknown]
  - Pain in extremity [Unknown]
  - Oedema peripheral [Unknown]
  - Back pain [Unknown]
  - Abdominal pain [Unknown]
  - Injection site rash [Unknown]
  - Haematoma [Unknown]
  - Oedema [Unknown]
